FAERS Safety Report 6054190-8 (Version None)
Quarter: 2009Q1

REPORT INFORMATION
  Report Type: 
  Country: None (occurrence: None)
  Receive Date: 20090127
  Receipt Date: 20090116
  Transmission Date: 20090719
  Serious: Yes (Hospitalization)
  Sender: FDA-Public Use
  Company Number: US-ELI_LILLY_AND_COMPANY-US200901002757

PATIENT
  Age: 73 Year
  Sex: Male

DRUGS (7)
  1. BYETTA [Suspect]
     Indication: DIABETES MELLITUS
     Dosage: UNK, UNKNOWN
     Route: 058
     Dates: start: 20070101, end: 20070101
  2. BYETTA [Suspect]
     Dosage: 10 UG, 2/D
     Route: 058
     Dates: start: 20070101
  3. GLYBURIDE [Concomitant]
     Dosage: 10 MG, 2/D
  4. ACTOS [Concomitant]
     Dosage: 45 MG, DAILY (1/D)
  5. METFORMIN HCL [Concomitant]
     Dosage: 1000 MG, 2/D
  6. VYTORIN [Concomitant]
  7. ATENOLOL [Concomitant]
     Indication: BLOOD PRESSURE INCREASED

REACTIONS (1)
  - PANCREATITIS ACUTE [None]
